FAERS Safety Report 15842516 (Version 1)
Quarter: 2019Q1

REPORT INFORMATION
  Report Type: Other
  Country: CA (occurrence: CA)
  Receive Date: 20190118
  Receipt Date: 20190118
  Transmission Date: 20190417
  Serious: Yes (Hospitalization)
  Sender: FDA-Public Use
  Company Number: CA-PFIZER INC-2935622

PATIENT
  Age: 31 Year
  Sex: Male
  Weight: 61 kg

DRUGS (2)
  1. LORAZEPAM. [Concomitant]
     Active Substance: LORAZEPAM
  2. LIDOCAINE HCL [Suspect]
     Active Substance: LIDOCAINE HYDROCHLORIDE
     Indication: LOCAL ANAESTHESIA
     Dosage: 1600 MG, UNK
     Route: 065

REACTIONS (14)
  - Dizziness [Unknown]
  - Choking sensation [Unknown]
  - Depressed level of consciousness [Unknown]
  - Lack of spontaneous speech [Unknown]
  - Sinus tachycardia [Unknown]
  - Overdose [Unknown]
  - Hallucination, visual [Unknown]
  - Speech disorder [Unknown]
  - Dyspnoea [Unknown]
  - Coordination abnormal [Unknown]
  - Dysarthria [Unknown]
  - Hypertension [Unknown]
  - Electrocardiogram QT prolonged [Unknown]
  - Agitation [Unknown]
